FAERS Safety Report 9787632 (Version 2)
Quarter: 2014Q1

REPORT INFORMATION
  Report Type: Spontaneous
  Country: None (occurrence: None)
  Receive Date: 20131226
  Receipt Date: 20140227
  Transmission Date: 20141002
  Serious: Yes (Other)
  Sender: FDA-Public Use
  Company Number: ADR-2013-02325

PATIENT
  Age: 69 Year
  Sex: 0

DRUGS (1)
  1. BACLOFEN [Suspect]
     Dosage: 275 MCG/DAY

REACTIONS (5)
  - Withdrawal syndrome [None]
  - Hypertension [None]
  - Hypertonia [None]
  - Muscle spasms [None]
  - Pruritus [None]
